FAERS Safety Report 25725696 (Version 1)
Quarter: 2025Q3

REPORT INFORMATION
  Report Type: Spontaneous
  Country: US (occurrence: US)
  Receive Date: 20250826
  Receipt Date: 20250826
  Transmission Date: 20251020
  Serious: No
  Sender: CHATTEM
  Company Number: US-OPELLA-2023OHG018803

PATIENT
  Sex: Male

DRUGS (1)
  1. NASACORT [Suspect]
     Active Substance: TRIAMCINOLONE ACETONIDE
     Indication: Nasal congestion

REACTIONS (2)
  - Drug ineffective [Unknown]
  - No adverse event [Unknown]
